FAERS Safety Report 12440563 (Version 2)
Quarter: 2016Q2

REPORT INFORMATION
  Report Type: Report from Study
  Country: US (occurrence: US)
  Receive Date: 20160606
  Receipt Date: 20160614
  Transmission Date: 20160815
  Serious: Yes (Other)
  Sender: FDA-Public Use
  Company Number: US-AMGEN-USASP2016062811

PATIENT
  Age: 56 Year
  Sex: Female

DRUGS (1)
  1. BLINCYTO [Suspect]
     Active Substance: BLINATUMOMAB
     Indication: ACUTE LYMPHOCYTIC LEUKAEMIA RECURRENT
     Dosage: 9 MUG, QD
     Route: 065
     Dates: start: 20160513

REACTIONS (8)
  - Device occlusion [Unknown]
  - Alanine aminotransferase increased [Not Recovered/Not Resolved]
  - Malaise [Unknown]
  - Liver function test increased [Recovering/Resolving]
  - Headache [Unknown]
  - Fluid retention [Unknown]
  - Nausea [Unknown]
  - Pneumothorax [Unknown]

NARRATIVE: CASE EVENT DATE: 201605
